FAERS Safety Report 10472490 (Version 2)
Quarter: 2014Q4

REPORT INFORMATION
  Report Type: Spontaneous
  Country: US (occurrence: None)
  Receive Date: 20140922
  Receipt Date: 20141209
  Transmission Date: 20150528
  Serious: Yes (Hospitalization)
  Sender: FDA-Public Use
  Company Number: SP08291

PATIENT
  Sex: Female

DRUGS (1)
  1. MOVIPREP [Suspect]
     Active Substance: ASCORBIC ACID\POLYETHYLENE GLYCOL 3350\POTASSIUM CHLORIDE\SODIUM ASCORBATE\SODIUM CHLORIDE\SODIUM SULFATE
     Indication: BOWEL PREPARATION
     Route: 048
     Dates: start: 20140828, end: 20140828

REACTIONS (8)
  - Vomiting [None]
  - Pain [None]
  - Rhinorrhoea [None]
  - Product quality issue [None]
  - Unevaluable event [None]
  - Malaise [None]
  - Tremor [None]
  - Gastrointestinal pain [None]

NARRATIVE: CASE EVENT DATE: 20140828
